FAERS Safety Report 7301762-6 (Version None)
Quarter: 2011Q1

REPORT INFORMATION
  Report Type: 
  Country: None (occurrence: None)
  Receive Date: 20110218
  Receipt Date: 20110214
  Transmission Date: 20110831
  Serious: Yes (Other)
  Sender: FDA-Public Use
  Company Number: A0910003A

PATIENT
  Age: 43 Year
  Sex: Female

DRUGS (2)
  1. TYKERB [Suspect]
     Indication: ADENOCARCINOMA
     Dosage: 1250MGD PER DAY
     Route: 048
     Dates: start: 20091001
  2. TRASTUZUMAB [Concomitant]

REACTIONS (3)
  - PALMAR-PLANTAR ERYTHRODYSAESTHESIA SYNDROME [None]
  - DIARRHOEA [None]
  - RASH [None]
